FAERS Safety Report 4523701-3 (Version None)
Quarter: 2004Q4

REPORT INFORMATION
  Report Type: 
  Country: None (occurrence: None)
  Receive Date: 20041210
  Receipt Date: 20041122
  Transmission Date: 20050328
  Serious: Yes (Life-Threatening, Other)
  Sender: FDA-Public Use
  Company Number: ZA-GLAXOSMITHKLINE-B0358672A

PATIENT
  Age: 30 Year
  Sex: Female

DRUGS (2)
  1. ZYBAN [Suspect]
     Indication: SMOKING CESSATION THERAPY
     Dosage: 150MG TWICE PER DAY
     Route: 048
     Dates: start: 20040101, end: 20040801
  2. FLIXONASE [Concomitant]
     Indication: ALLERGIC SINUSITIS
     Dosage: 300MCG PER DAY

REACTIONS (4)
  - CONVULSION [None]
  - LOSS OF CONSCIOUSNESS [None]
  - MYALGIA [None]
  - URINARY INCONTINENCE [None]
